FAERS Safety Report 19010209 (Version 2)
Quarter: 2021Q1

REPORT INFORMATION
  Report Type: Report from Study
  Country: US (occurrence: US)
  Receive Date: 20210315
  Receipt Date: 20210319
  Transmission Date: 20210420
  Serious: Yes (Hospitalization)
  Sender: FDA-Public Use
  Company Number: US-MYLANLABS-2021M1014066

PATIENT
  Age: 79 Year
  Sex: Male
  Weight: 64.9 kg

DRUGS (119)
  1. CAYSTON [Suspect]
     Active Substance: AZTREONAM
     Dosage: 75 MILLIGRAM, TID
     Dates: start: 20180401, end: 20180429
  2. CAYSTON [Suspect]
     Active Substance: AZTREONAM
     Dosage: 75 MILLIGRAM, TID
     Dates: start: 20200524, end: 20200621
  3. PREDNISONE. [Concomitant]
     Active Substance: PREDNISONE
     Dosage: 30 MILLIGRAM, QD
     Route: 048
     Dates: start: 20210107, end: 20210111
  4. PREDNISONE. [Concomitant]
     Active Substance: PREDNISONE
     Dosage: 30 MILLIGRAM, QD
     Route: 048
     Dates: start: 20200831, end: 20200903
  5. LISINOPRIL. [Concomitant]
     Active Substance: LISINOPRIL
     Indication: HEPATIC FUNCTION ABNORMAL
     Dosage: 2.5 MILLIGRAM, BID
     Route: 048
     Dates: start: 20210203, end: 20210219
  6. VERAPAMIL [Concomitant]
     Active Substance: VERAPAMIL HYDROCHLORIDE
     Indication: ATRIAL FIBRILLATION
     Dosage: 2.5 MILLIGRAM, QD
     Route: 013
     Dates: start: 20201208, end: 20201208
  7. ENOXAPARIN [Concomitant]
     Active Substance: ENOXAPARIN
     Indication: PROPHYLAXIS
     Dosage: 40 MILLIGRAM, BID
     Route: 058
     Dates: start: 20201031, end: 20201112
  8. DULCOLAX (BISACODYL) [Concomitant]
     Active Substance: BISACODYL
     Indication: CONSTIPATION
     Dosage: 10 MILLIGRAM, QD
     Route: 054
     Dates: start: 20201030, end: 20201112
  9. DULCOLAX (BISACODYL) [Concomitant]
     Active Substance: BISACODYL
     Dosage: 10 MILLIGRAM
     Route: 048
     Dates: start: 20200826, end: 20200826
  10. PERIDEX                            /00016001/ [Concomitant]
     Active Substance: DEXAMETHASONE
     Dosage: 15 ML 0.12 PERCENT SOLUTION
     Route: 048
     Dates: start: 20201030, end: 20201112
  11. ZOFRAN [Concomitant]
     Active Substance: ONDANSETRON HYDROCHLORIDE
     Indication: NAUSEA
     Dosage: 4 MILLIGRAM, QID PRN
     Route: 048
     Dates: start: 20201030, end: 20201112
  12. ZOFRAN [Concomitant]
     Active Substance: ONDANSETRON HYDROCHLORIDE
     Dosage: 4 MILLIGRAM, QD
     Route: 048
     Dates: start: 20200826, end: 20200827
  13. ALBUTEROL                          /00139501/ [Concomitant]
     Active Substance: ALBUTEROL
     Dosage: 108 MICROGRAM Q4H, PRN
     Dates: start: 20171019
  14. AMLODIPINE [Concomitant]
     Active Substance: AMLODIPINE BESYLATE
     Dosage: 10 MILLIGRAM, QD
     Route: 048
     Dates: start: 20190404, end: 20190422
  15. NIFEDIPINE. [Concomitant]
     Active Substance: NIFEDIPINE
     Indication: HYPERTENSION
     Dosage: 60 MILLIGRAM, QD
     Route: 048
     Dates: start: 20190422, end: 20190510
  16. TOBI PODHALER [Suspect]
     Active Substance: TOBRAMYCIN
     Indication: CYSTIC FIBROSIS
     Dosage: 112 MILLIGRAM, BID
     Dates: start: 20170501, end: 20170507
  17. CAYSTON [Suspect]
     Active Substance: AZTREONAM
     Dosage: 75 MILLIGRAM, TID
     Dates: start: 20200913, end: 20201011
  18. PREDNISONE. [Concomitant]
     Active Substance: PREDNISONE
     Indication: CYSTIC FIBROSIS LUNG
     Dosage: 10 MILLIGRAM, QD
     Route: 048
     Dates: start: 20210117, end: 20210121
  19. PREDNISONE. [Concomitant]
     Active Substance: PREDNISONE
     Dosage: 40 MILLIGRAM, QD
     Route: 048
     Dates: start: 20201111, end: 20201112
  20. PHENYLEPHRINE [Concomitant]
     Active Substance: PHENYLEPHRINE HYDROCHLORIDE
     Dosage: 100 MICROGRAM
     Dates: start: 20210304
  21. LEVAQUIN [Concomitant]
     Active Substance: LEVOFLOXACIN
     Indication: DYSPNOEA
     Dosage: 750 MILLIGRAM, QD
     Route: 048
     Dates: start: 20200831, end: 20200914
  22. LIDOCAINE. [Concomitant]
     Active Substance: LIDOCAINE
     Dosage: 0.1 MILLILITER, PRN
     Route: 058
     Dates: start: 20201030, end: 20201030
  23. FLUTICASONE FUROATE W/VILANTEROL [Concomitant]
     Active Substance: FLUTICASONE FUROATE\VILANTEROL TRIFENATATE
     Indication: LUNG DISORDER
     Dosage: 1 PUFF
     Dates: start: 20210128
  24. AMIODARONE [Concomitant]
     Active Substance: AMIODARONE
     Indication: ATRIAL FIBRILLATION
     Dosage: 200 MILLIGRAM, QD
     Route: 048
     Dates: start: 20201113, end: 20201221
  25. AMIODARONE [Concomitant]
     Active Substance: AMIODARONE
     Dosage: 400 MILLIGRAM, QD
     Route: 048
     Dates: start: 20201103, end: 20201112
  26. MELATONIN [Concomitant]
     Active Substance: MELATONIN
     Indication: INSOMNIA
     Dosage: 3 MILLIGRAM, QD
     Route: 048
  27. SENOKOT [Concomitant]
     Active Substance: SENNOSIDES
     Indication: CONSTIPATION
     Dosage: 10 MILLILITER, BID
     Route: 048
     Dates: start: 20201030, end: 20201112
  28. OXY.IR [Concomitant]
     Active Substance: OXYCODONE HYDROCHLORIDE
     Dosage: 5 MILLIGRAM, Q6H PRN
     Route: 048
     Dates: start: 20200326, end: 20200420
  29. AMLODIPINE [Concomitant]
     Active Substance: AMLODIPINE BESYLATE
     Indication: HYPERTENSION
     Dosage: 5 MILLIGRAM, QD
     Route: 048
     Dates: start: 20181120, end: 20190404
  30. ZOSYN [Concomitant]
     Active Substance: PIPERACILLIN SODIUM\TAZOBACTAM SODIUM
     Indication: INFECTIVE PULMONARY EXACERBATION OF CYSTIC FIBROSIS
     Dosage: 4.5 GRAM, TID
     Route: 042
     Dates: start: 20181115, end: 20181129
  31. CAYSTON [Suspect]
     Active Substance: AZTREONAM
     Dosage: 75 MILLIGRAM, TID
     Dates: start: 20200719, end: 20200816
  32. COLISTIN [Suspect]
     Active Substance: COLISTIN
     Dosage: 150 MILLIGRAM, BID
     Dates: start: 20170128, end: 20170215
  33. POTASSIUM CHLORIDE. [Concomitant]
     Active Substance: POTASSIUM CHLORIDE
     Indication: HYPOKALAEMIA
     Dosage: 20 MILLIEQUIVALENT, QD
     Route: 048
     Dates: start: 20210122
  34. LIDOCAINE. [Concomitant]
     Active Substance: LIDOCAINE
     Indication: MAINTENANCE OF ANAESTHESIA
     Dosage: 2 MILLIGRAM, QD
     Route: 058
     Dates: start: 20201208, end: 20201208
  35. FLUTICASONE FUROATE [Concomitant]
     Active Substance: FLUTICASONE FUROATE
     Indication: CYSTIC FIBROSIS LUNG
     Dosage: 200 MICROGRAM, QD
  36. PRECEDEX [Concomitant]
     Active Substance: DEXMEDETOMIDINE HYDROCHLORIDE
     Dosage: UNK0.05 MCQ KG/HR
     Route: 042
     Dates: start: 20201101, end: 20201112
  37. ZERBAXA [Concomitant]
     Active Substance: CEFTOLOZANE SULFATE\TAZOBACTAM SODIUM
     Indication: COVID-19 PNEUMONIA
     Dosage: 3 GRAM, TID
     Route: 042
     Dates: start: 20201031, end: 20201112
  38. CAYSTON [Suspect]
     Active Substance: AZTREONAM
     Dosage: 75 MILLIGRAM, TID
     Dates: start: 20161003, end: 20161031
  39. CAYSTON [Suspect]
     Active Substance: AZTREONAM
     Dosage: 75 MILLIGRAM, TID
     Dates: start: 20170606, end: 20170622
  40. CAYSTON [Suspect]
     Active Substance: AZTREONAM
     Dosage: 75 MILLIGRAM, TID
     Dates: start: 20210103, end: 20210131
  41. CAYSTON [Suspect]
     Active Substance: AZTREONAM
     Dosage: 75 MILLIGRAM, TID
     Dates: start: 20210301
  42. CAYSTON [Suspect]
     Active Substance: AZTREONAM
     Dosage: 75 MILLIGRAM, TID
     Dates: start: 20181111, end: 20181209
  43. PREDNISONE. [Concomitant]
     Active Substance: PREDNISONE
     Indication: WHEEZING
     Dosage: 10 MILLIGRAM, QD
     Route: 048
     Dates: start: 20201221, end: 20201222
  44. PREDNISONE. [Concomitant]
     Active Substance: PREDNISONE
     Dosage: 10 MILLIGRAM, QD
     Route: 048
     Dates: start: 20200908, end: 20200911
  45. LEVAQUIN [Concomitant]
     Active Substance: LEVOFLOXACIN
     Indication: CYSTIC FIBROSIS LUNG
     Dosage: 750 MILLIGRAM, QD
     Route: 048
     Dates: start: 20210107, end: 20210128
  46. FUROSEMIDE. [Concomitant]
     Active Substance: FUROSEMIDE
     Dosage: 60 MILLIGRAM, QD
     Route: 048
     Dates: start: 20201201, end: 20201201
  47. FUROSEMIDE. [Concomitant]
     Active Substance: FUROSEMIDE
     Dosage: 40 MILLIGRAM, QD
     Route: 048
     Dates: start: 20201119, end: 20201201
  48. LORAZEPAM. [Concomitant]
     Active Substance: LORAZEPAM
     Indication: ANXIETY
     Dosage: UNK, Q4H, 1?2 MILLIGRAM
     Route: 042
     Dates: start: 20201101, end: 20201112
  49. ACETAMINOPHEN. [Concomitant]
     Active Substance: ACETAMINOPHEN
     Indication: PYREXIA
     Dosage: UNK
  50. LOSARTAN. [Concomitant]
     Active Substance: LOSARTAN
     Indication: HYPERTENSION
     Dosage: 100 MILLIGRAM, QD
     Route: 048
     Dates: start: 20181109, end: 20181112
  51. CAYSTON [Suspect]
     Active Substance: AZTREONAM
     Dosage: 75 MILLIGRAM, TID
     Dates: start: 20171001, end: 20171029
  52. CAYSTON [Suspect]
     Active Substance: AZTREONAM
     Dosage: 75 MILLIGRAM, TID
     Dates: start: 20180527, end: 20180624
  53. CAYSTON [Suspect]
     Active Substance: AZTREONAM
     Dosage: 75 MILLIGRAM, TID
     Dates: start: 20180916, end: 20181014
  54. CAYSTON [Suspect]
     Active Substance: AZTREONAM
     Dosage: 75 MILLIGRAM, TID
     Dates: start: 20190303, end: 20190331
  55. CAYSTON [Suspect]
     Active Substance: AZTREONAM
     Dosage: 75 MILLIGRAM, TID
     Dates: start: 20191208, end: 20200105
  56. CAYSTON [Suspect]
     Active Substance: AZTREONAM
     Dosage: 75 MILLIGRAM
     Dates: start: 20201109, end: 20201204
  57. COLISTIN [Suspect]
     Active Substance: COLISTIN
     Indication: PRODUCT USED FOR UNKNOWN INDICATION
     Dosage: 150 MILLIGRAM, BID
     Dates: start: 20170101, end: 20170128
  58. COLISTIN [Suspect]
     Active Substance: COLISTIN
     Dosage: 150 MILLIGRAM, BID
     Dates: start: 20170401, end: 20170413
  59. PREDNISONE. [Concomitant]
     Active Substance: PREDNISONE
     Dosage: 20 MILLIGRAM, QD
     Route: 048
     Dates: start: 20201101, end: 20201105
  60. PREDNISONE. [Concomitant]
     Active Substance: PREDNISONE
     Dosage: 20 MILLIGRAM, QD
     Route: 048
     Dates: start: 20200904, end: 20200907
  61. POTASSIUM CHLORIDE. [Concomitant]
     Active Substance: POTASSIUM CHLORIDE
     Indication: GENERALISED OEDEMA
     Dosage: 20 MILLIEQUIVALENT, QD
     Route: 048
     Dates: start: 20201123, end: 20201208
  62. POTASSIUM CHLORIDE. [Concomitant]
     Active Substance: POTASSIUM CHLORIDE
     Dosage: 40 MICROEQUIVALENT
     Route: 048
     Dates: start: 20201119, end: 20201120
  63. LISINOPRIL. [Concomitant]
     Active Substance: LISINOPRIL
     Dosage: 5 MILLIGRAM, BID
     Route: 048
     Dates: start: 20210219
  64. LEVAQUIN [Concomitant]
     Active Substance: LEVOFLOXACIN
     Indication: COUGH
     Dosage: 750 MILLIGRAM, QD
     Route: 048
     Dates: start: 20201025, end: 20201028
  65. FUROSEMIDE. [Concomitant]
     Active Substance: FUROSEMIDE
     Indication: CARDIAC FAILURE
     Dosage: 20 MILLIEQUIVALENT, QD
     Route: 048
     Dates: start: 20210115, end: 20210119
  66. HEPARIN [Concomitant]
     Active Substance: HEPARIN SODIUM
     Indication: ATRIAL FIBRILLATION
     Dosage: 2500 INTERNATIONAL UNIT, QD
     Route: 042
     Dates: start: 20201208, end: 20201208
  67. NITROGLYCERIN. [Concomitant]
     Active Substance: NITROGLYCERIN
     Indication: ATRIAL FIBRILLATION
     Dosage: 100 MICROGRAM, QD
     Route: 013
     Dates: start: 20201208, end: 20201208
  68. FENTANYL. [Concomitant]
     Active Substance: FENTANYL
     Dosage: 50 MICROGRAM, QD
     Route: 042
     Dates: start: 20201030, end: 20201112
  69. SODIUM CHLORIDE. [Concomitant]
     Active Substance: SODIUM CHLORIDE
     Dosage: UNK 75 ML/ HR
     Route: 042
  70. METHYLPREDNISOLONE. [Concomitant]
     Active Substance: METHYLPREDNISOLONE
     Indication: COVID-19 TREATMENT
     Dosage: 40 MILLIGRAM, TID
     Route: 042
  71. GLUCAGON. [Concomitant]
     Active Substance: GLUCAGON
     Dosage: 1 MILLIGRAM, PRN
     Route: 030
  72. REMDESIVIR. [Concomitant]
     Active Substance: REMDESIVIR
     Indication: COVID-19 TREATMENT
     Dosage: 100 MILLIGRAM, QD
     Route: 042
     Dates: start: 20201103, end: 20201112
  73. MIRALAX [Concomitant]
     Active Substance: POLYETHYLENE GLYCOL 3350
     Dosage: 1 SACHET, Q6H, PRN
     Route: 048
     Dates: start: 20200326, end: 20201112
  74. CEFTAZIDIME. [Concomitant]
     Active Substance: CEFTAZIDIME
     Indication: INFECTIVE PULMONARY EXACERBATION OF CYSTIC FIBROSIS
     Dosage: UNK
  75. CAYSTON [Suspect]
     Active Substance: AZTREONAM
     Dosage: 75 MILLIGRAM, TID
     Dates: start: 20170414, end: 20170430
  76. CAYSTON [Suspect]
     Active Substance: AZTREONAM
     Dosage: 75 MILLIGRAM, TID
     Dates: start: 20180722, end: 20180819
  77. CAYSTON [Suspect]
     Active Substance: AZTREONAM
     Dosage: 75 MILLIGRAM, TID
     Dates: start: 20200202, end: 20200301
  78. CAYSTON [Suspect]
     Active Substance: AZTREONAM
     Dosage: 75 MILLIGRAM, TID
     Dates: start: 20200329, end: 20200424
  79. PREDNISONE. [Concomitant]
     Active Substance: PREDNISONE
     Indication: COUGH
     Dosage: 30 MILLIGRAM
     Route: 048
     Dates: start: 20210121, end: 20210123
  80. FUROSEMIDE. [Concomitant]
     Active Substance: FUROSEMIDE
     Indication: OEDEMA PERIPHERAL
     Dosage: 40 MILLIGRAM, QD
     Route: 048
     Dates: start: 20210119, end: 20210127
  81. FUROSEMIDE. [Concomitant]
     Active Substance: FUROSEMIDE
     Indication: GENERALISED OEDEMA
     Dosage: 40 MILLIGRAM, BID
     Route: 048
     Dates: start: 20201201, end: 20201204
  82. APIXABAN [Concomitant]
     Active Substance: APIXABAN
     Indication: ATRIAL FIBRILLATION
     Dosage: 5 MILLIGRAM, BID
     Route: 048
     Dates: start: 20201112, end: 20210213
  83. METOPROLOL TARTRAS [Concomitant]
     Active Substance: METOPROLOL TARTRATE
     Indication: ATRIAL FIBRILLATION
     Dosage: 12.5 MILLIGRAM, BID
     Route: 048
     Dates: start: 20201112, end: 20210129
  84. VITAMIN D3 [Concomitant]
     Active Substance: CHOLECALCIFEROL
     Indication: COVID-19 TREATMENT
     Dosage: 25 MICROGRAM, QD
     Route: 048
  85. REMDESIVIR. [Concomitant]
     Active Substance: REMDESIVIR
     Dosage: 100 MILLIGRAM, QD
     Route: 042
     Dates: start: 20201031, end: 20201112
  86. COLACE [Concomitant]
     Active Substance: DOCUSATE SODIUM
     Indication: CONSTIPATION
     Dosage: 100 MILLIGRAM, BID PRN
     Route: 048
     Dates: start: 20201030, end: 20201112
  87. HYDROCHLOROTHIAZIDE. [Concomitant]
     Active Substance: HYDROCHLOROTHIAZIDE
     Indication: HYPERTENSION
     Dosage: 25 MILLIGRAM, QD
     Route: 048
     Dates: start: 20190510, end: 20190614
  88. AUGMENTIN [Concomitant]
     Active Substance: AMOXICILLIN\CLAVULANATE POTASSIUM
     Indication: BRONCHIECTASIS
     Dosage: 875?125 MG
     Route: 048
     Dates: start: 20190404, end: 20190413
  89. TOBI PODHALER [Suspect]
     Active Substance: TOBRAMYCIN
     Indication: PSEUDOMONAS INFECTION
     Dosage: 112 MILLIGRAM, BID
     Dates: start: 20170518, end: 20170605
  90. CAYSTON [Suspect]
     Active Substance: AZTREONAM
     Indication: PRODUCT USED FOR UNKNOWN INDICATION
     Dosage: 75 MILLIGRAM, TID
     Dates: start: 20160825, end: 20160905
  91. CAYSTON [Suspect]
     Active Substance: AZTREONAM
     Dosage: 75 MILLIGRAM, TID
     Dates: start: 20161201, end: 20161228
  92. CAYSTON [Suspect]
     Active Substance: AZTREONAM
     Dosage: 75 MILLIGRAM, TID
     Dates: start: 20180201, end: 20180301
  93. CAYSTON [Suspect]
     Active Substance: AZTREONAM
     Dosage: 75 MILLIGRAM, TID
     Dates: start: 20190106, end: 20190203
  94. CAYSTON [Suspect]
     Active Substance: AZTREONAM
     Dosage: 75 MILLIGRAM, TID
     Dates: start: 20190428, end: 20190524
  95. CAYSTON [Suspect]
     Active Substance: AZTREONAM
     Dosage: 75 MILLIGRAM, TID
     Dates: start: 20190623, end: 20190721
  96. CAYSTON [Suspect]
     Active Substance: AZTREONAM
     Dosage: 75 MILLIGRAM, TID
     Dates: start: 20191013, end: 20191110
  97. PREDNISONE. [Concomitant]
     Active Substance: PREDNISONE
     Indication: DYSPNOEA
     Dosage: 20 MILLIGRAM
     Route: 048
     Dates: start: 20210124, end: 20210126
  98. PREDNISONE. [Concomitant]
     Active Substance: PREDNISONE
     Indication: COVID-19
     Dosage: 20 MILLIGRAM, QD
     Route: 048
     Dates: start: 20201214, end: 20201221
  99. PREDNISONE. [Concomitant]
     Active Substance: PREDNISONE
     Dosage: 20 MILLIGRAM, QD
     Route: 048
     Dates: start: 20210112, end: 20210116
  100. PREDNISONE. [Concomitant]
     Active Substance: PREDNISONE
     Dosage: 30 MILLIGRAM, QD
     Route: 048
     Dates: start: 20201027, end: 20201031
  101. PREDNISONE. [Concomitant]
     Active Substance: PREDNISONE
     Dosage: 10 MILLIGRAM, QID
     Route: 048
     Dates: start: 20201017, end: 20201120
  102. LEVAQUIN [Concomitant]
     Active Substance: LEVOFLOXACIN
     Indication: COVID-19 PNEUMONIA
     Dosage: 750 MILLIGRAM, QD
     Route: 042
     Dates: start: 20201031, end: 20201112
  103. IODIXANOL. [Concomitant]
     Active Substance: IODIXANOL
     Indication: ANGIOGRAM
     Dosage: 30 MILLILITER, QD
     Route: 042
     Dates: start: 20201208, end: 20201209
  104. FENTANYL. [Concomitant]
     Active Substance: FENTANYL
     Indication: SEDATION
     Dosage: 50 MICROGRAM, QD
     Dates: start: 20201208, end: 20201208
  105. MIDAZOLAM. [Concomitant]
     Active Substance: MIDAZOLAM
     Indication: SEDATION
     Dosage: UNK 2 MG/ 2 ML
     Route: 042
     Dates: start: 20201208, end: 20201208
  106. MAGNESIUM HYDROXIDE. [Concomitant]
     Active Substance: MAGNESIUM HYDROXIDE
     Indication: CONSTIPATION
     Dosage: 30 MILLILITER, TID
     Route: 048
     Dates: start: 20201102, end: 20201112
  107. LANTUS [Concomitant]
     Active Substance: INSULIN GLARGINE
     Dosage: 40 INTERNATIONAL UNIT, QD
     Route: 058
     Dates: start: 20201102, end: 20201111
  108. CAYSTON [Suspect]
     Active Substance: AZTREONAM
     Dosage: 75 MILLIGRAM, TID
     Dates: start: 20190818, end: 20190915
  109. LISINOPRIL. [Concomitant]
     Active Substance: LISINOPRIL
     Dosage: 5 MILLIGRAM, QD
     Route: 048
     Dates: start: 20201113, end: 20201120
  110. METOPROLOL SUCCINATE. [Concomitant]
     Active Substance: METOPROLOL SUCCINATE
     Indication: CARDIAC FAILURE
     Dosage: 25 MILLIGRAM, QD
     Route: 048
     Dates: start: 20210129
  111. TYLENOL [Concomitant]
     Active Substance: ACETAMINOPHEN
     Indication: PAIN
     Dosage: 1000 MILLIGRAM, QID
     Route: 048
     Dates: start: 20200326
  112. ASPIRIN                            /00002701/ [Concomitant]
     Active Substance: ASPIRIN
     Dosage: 81 MILLIGRAM, QD
     Route: 048
  113. VITAMIN C [Concomitant]
     Active Substance: ASCORBIC ACID
     Indication: COVID-19 TREATMENT
     Dosage: 1000 MILLIGRAM, QD
     Route: 048
  114. HYDROCODONE/ACETAMINOPHEN [Concomitant]
     Active Substance: ACETAMINOPHEN\HYDROCODONE
     Dosage: 5?325 MILLIGRAM Q6H, PRN
     Route: 048
     Dates: start: 20200326, end: 20200420
  115. CARDIZEM [Concomitant]
     Active Substance: DILTIAZEM HYDROCHLORIDE
     Indication: HYPERTENSION
     Dosage: 240 MILLIGRAM, QD
     Route: 048
     Dates: start: 20190510, end: 20201112
  116. TAMIFLU [Concomitant]
     Active Substance: OSELTAMIVIR PHOSPHATE
     Indication: INFLUENZA LIKE ILLNESS
     Dosage: 75 MILLIGRAM, BID
     Route: 048
     Dates: start: 20190125, end: 20190131
  117. CAYSTON [Suspect]
     Active Substance: AZTREONAM
     Dosage: 75 MILLIGRAM, TID
     Dates: start: 20170301, end: 20170329
  118. CAYSTON [Suspect]
     Active Substance: AZTREONAM
     Dosage: 75 MILLIGRAM, TID
     Dates: start: 20170801, end: 20170829
  119. CAYSTON [Suspect]
     Active Substance: AZTREONAM
     Dosage: 75 MILLIGRAM, TID
     Dates: start: 20171201, end: 20171229

REACTIONS (1)
  - Ventricular pre-excitation [Unknown]

NARRATIVE: CASE EVENT DATE: 20210304
